FAERS Safety Report 21551646 (Version 1)
Quarter: 2022Q4

REPORT INFORMATION
  Report Type: Spontaneous
  Country: US (occurrence: US)
  Receive Date: 20221104
  Receipt Date: 20221104
  Transmission Date: 20230112
  Serious: Yes (Death, Hospitalization, Disabling, Other)
  Sender: FDA-Public Use
  Company Number: US-009507513-2209USA010256

PATIENT
  Sex: Female

DRUGS (12)
  1. TEMODAR [Suspect]
     Active Substance: TEMOZOLOMIDE
     Indication: Glioblastoma multiforme
     Dosage: UNK
     Route: 048
     Dates: start: 202102, end: 202103
  2. KEYTRUDA [Suspect]
     Active Substance: PEMBROLIZUMAB
     Indication: Lung adenocarcinoma
     Dosage: 200 MILLIGRAM, Q 3-6 WEEKS
     Route: 042
     Dates: start: 20211005, end: 20220310
  3. KEYTRUDA [Suspect]
     Active Substance: PEMBROLIZUMAB
     Indication: Glioblastoma multiforme
  4. AVASTIN [Suspect]
     Active Substance: BEVACIZUMAB
     Indication: Glioblastoma multiforme
     Dosage: ONCE A MONTH
     Route: 042
     Dates: start: 202106, end: 202110
  5. AVASTIN [Suspect]
     Active Substance: BEVACIZUMAB
     Indication: Lung adenocarcinoma
  6. CARBOPLATIN [Suspect]
     Active Substance: CARBOPLATIN
     Indication: Glioblastoma multiforme
     Dosage: ONCE A MONTH
     Route: 042
     Dates: start: 202106, end: 202110
  7. CARBOPLATIN [Suspect]
     Active Substance: CARBOPLATIN
     Indication: Lung adenocarcinoma
  8. NIFEDIPINE [Concomitant]
     Active Substance: NIFEDIPINE
     Dosage: 60 MILLIGRAM, BID
  9. HYDRALAZINE [Concomitant]
     Active Substance: HYDRALAZINE HYDROCHLORIDE
     Dosage: 50 MILLIGRAM, TID
  10. KEPPRA XR [Concomitant]
     Active Substance: LEVETIRACETAM
     Dosage: 500 MILLIGRAM, BID
  11. TRAZODONE [Concomitant]
     Active Substance: TRAZODONE HYDROCHLORIDE
     Indication: Sleep disorder
     Dosage: UNK, HS
  12. ALBUTEROL [Concomitant]
     Active Substance: ALBUTEROL
     Dosage: UNK, PRN

REACTIONS (26)
  - Death [Fatal]
  - Dysphagia [Unknown]
  - Hemiparesis [Unknown]
  - Cardiomyopathy [Unknown]
  - Cardiac failure congestive [Unknown]
  - Cardiac arrest [Unknown]
  - Coma [Unknown]
  - Brain oedema [Not Recovered/Not Resolved]
  - Neurological symptom [Unknown]
  - Mental status changes [Unknown]
  - Status epilepticus [Unknown]
  - Cerebrovascular accident [Unknown]
  - Aphasia [Unknown]
  - Lung adenocarcinoma [Unknown]
  - Malignant neoplasm progression [Unknown]
  - Glioblastoma [Unknown]
  - Hydrocephalus [Unknown]
  - Drug intolerance [Unknown]
  - Blood alkaline phosphatase increased [Unknown]
  - Dry mouth [Unknown]
  - Oral discharge [Unknown]
  - Blood glucose increased [Unknown]
  - Carbon dioxide increased [Unknown]
  - Product use issue [Unknown]
  - Product dose omission in error [Unknown]
  - Product use in unapproved indication [Unknown]

NARRATIVE: CASE EVENT DATE: 20210101
